FAERS Safety Report 4345979-1 (Version None)
Quarter: 2004Q1

REPORT INFORMATION
  Report Type: 
  Country: None (occurrence: None)
  Receive Date: 20040325
  Receipt Date: 20040116
  Transmission Date: 20041129
  Serious: No
  Sender: FDA-Public Use
  Company Number: USA040156827

PATIENT
  Age: 82 Year
  Sex: Female

DRUGS (8)
  1. FORTEO [Suspect]
     Indication: OSTEOPOROSIS
     Dates: start: 20040116
  2. ACTONEL [Concomitant]
  3. MIACALCIN [Concomitant]
  4. ZOCOR [Concomitant]
  5. PLENDIL [Concomitant]
  6. DIOVAN [Concomitant]
  7. HYDROCHLOROTHIAZIDE [Concomitant]
  8. .. [Suspect]

REACTIONS (2)
  - INJECTION SITE BURNING [None]
  - MUSCLE SPASMS [None]
